FAERS Safety Report 4628125-6 (Version None)
Quarter: 2005Q2

REPORT INFORMATION
  Report Type: 
  Country: None (occurrence: None)
  Receive Date: 20050406
  Receipt Date: 20050330
  Transmission Date: 20051028
  Serious: Yes (Disabling, Other)
  Sender: FDA-Public Use
  Company Number: GB-GLAXOSMITHKLINE-B0376244A

PATIENT
  Age: 77 Year
  Sex: Female

DRUGS (3)
  1. CO-AMOXICLAV [Suspect]
     Indication: LOWER RESPIRATORY TRACT INFECTION
     Route: 048
     Dates: start: 20050107, end: 20050114
  2. BENDROFLUMETHIAZIDE [Concomitant]
     Indication: HYPERTENSION
     Dosage: 2.5MG PER DAY
     Route: 065
     Dates: start: 20000609
  3. LEVOTHYROXINE [Concomitant]
     Indication: HYPOTHYROIDISM
     Dosage: 100MCG PER DAY
     Route: 065
     Dates: start: 19960618

REACTIONS (3)
  - CHROMATURIA [None]
  - HEPATIC ENZYME INCREASED [None]
  - JAUNDICE [None]
